FAERS Safety Report 11271085 (Version 1)
Quarter: 2015Q3

REPORT INFORMATION
  Report Type: Spontaneous
  Country: US (occurrence: US)
  Receive Date: 20150714
  Receipt Date: 20150714
  Transmission Date: 20151125
  Serious: No
  Sender: FDA-Public Use
  Company Number: US-ELI_LILLY_AND_COMPANY-US201506008189

PATIENT
  Sex: Female

DRUGS (9)
  1. GLUCADOL                           /00943605/ [Concomitant]
     Dosage: UNK, UNKNOWN
     Route: 065
  2. TOPROL XL [Concomitant]
     Active Substance: METOPROLOL SUCCINATE
     Dosage: UNK, UNKNOWN
     Route: 065
  3. JARDIANCE [Concomitant]
     Active Substance: EMPAGLIFLOZIN
     Dosage: UNK, UNKNOWN
     Route: 065
  4. HCTZ [Concomitant]
     Active Substance: HYDROCHLOROTHIAZIDE
     Dosage: UNK, UNKNOWN
     Route: 065
  5. LEVEMIR [Concomitant]
     Active Substance: INSULIN DETEMIR
     Dosage: UNK, UNKNOWN
     Route: 065
  6. TRULICITY [Suspect]
     Active Substance: DULAGLUTIDE
     Indication: TYPE 2 DIABETES MELLITUS
     Dosage: 1.5 MG, WEEKLY (1/W)
     Dates: start: 201505
  7. GLUCOFAGE [Concomitant]
     Dosage: UNK, UNKNOWN
     Route: 065
  8. LOSARTAN. [Concomitant]
     Active Substance: LOSARTAN
  9. B12                                /00056201/ [Concomitant]
     Dosage: UNK, MONTHLY (1/M)
     Route: 065

REACTIONS (3)
  - Headache [Recovered/Resolved]
  - Weight decreased [Unknown]
  - Decreased appetite [Unknown]
